FAERS Safety Report 4302222-7 (Version None)
Quarter: 2004Q1

REPORT INFORMATION
  Report Type: 
  Country: None (occurrence: None)
  Receive Date: 20040220
  Receipt Date: 20040205
  Transmission Date: 20041129
  Serious: Yes (Hospitalization, Other)
  Sender: FDA-Public Use
  Company Number: DE-SHR-04-020802

PATIENT
  Sex: Female

DRUGS (8)
  1. BETAFERON (INTERFERON BETA - 1B), 250UG [Suspect]
     Indication: MULTIPLE SCLEROSIS
     Dosage: EVERY 2D, SUBCUTANEOUS
     Route: 058
     Dates: start: 19970101
  2. CARBAMAZEPINE [Concomitant]
  3. ATORVASTATIN CALCIUM [Concomitant]
  4. NEXIUM [Concomitant]
  5. GLYBURIDE [Concomitant]
  6. SORTIS ^GOEDECKE^ (ATORVASTATIN CALCIUM) [Concomitant]
  7. ESPUMISAN (DIMETICONE) [Concomitant]
  8. ALNA (TAMSULOSIN HYDROCHLORIDE) [Concomitant]

REACTIONS (2)
  - CHOLANGITIS SCLEROSING [None]
  - PORTAL HYPERTENSION [None]
